FAERS Safety Report 10676709 (Version 2)
Quarter: 2014Q4

REPORT INFORMATION
  Report Type: Spontaneous
  Country: US (occurrence: US)
  Receive Date: 20141226
  Receipt Date: 20141231
  Transmission Date: 20150529
  Serious: Yes (Other)
  Sender: FDA-Public Use
  Company Number: US-PFIZER INC-2014355016

PATIENT
  Age: 23 Year
  Sex: Male

DRUGS (2)
  1. EPHEDRINE [Suspect]
     Active Substance: EPHEDRINE
     Dosage: 2500 MG, DAILY
  2. NICOTINE. [Suspect]
     Active Substance: NICOTINE
     Dosage: UNK

REACTIONS (2)
  - Drug dependence [Unknown]
  - Nicotine dependence [Unknown]
